FAERS Safety Report 7012907-X (Version None)
Quarter: 2010Q3

REPORT INFORMATION
  Report Type: 
  Country: None (occurrence: None)
  Receive Date: 20100924
  Receipt Date: 20100913
  Transmission Date: 20110219
  Serious: Yes (Other)
  Sender: FDA-Public Use
  Company Number: US-PFIZER INC-2010116230

PATIENT
  Sex: Male
  Weight: 86.168 kg

DRUGS (5)
  1. SERTRALINE HYDROCHLORIDE [Suspect]
     Indication: ANXIETY
     Dosage: 50 MG, 2X/DAY
     Route: 048
     Dates: start: 20090101
  2. SERTRALINE HYDROCHLORIDE [Suspect]
     Indication: MAJOR DEPRESSION
     Dosage: 50 MG, 1X/DAY
     Dates: start: 20100901
  3. SERTRALINE HYDROCHLORIDE [Suspect]
     Indication: OBSESSIVE-COMPULSIVE DISORDER
  4. NEXIUM [Concomitant]
     Indication: GASTROOESOPHAGEAL REFLUX DISEASE
     Dosage: UNK
  5. NEXIUM [Concomitant]
     Indication: NERVOUSNESS

REACTIONS (5)
  - ANXIETY [None]
  - DEPRESSION [None]
  - IRRITABILITY [None]
  - LETHARGY [None]
  - MOTOR DYSFUNCTION [None]
